FAERS Safety Report 6062759-X (Version None)
Quarter: 2009Q1

REPORT INFORMATION
  Report Type: 
  Country: None (occurrence: None)
  Receive Date: 20090202
  Receipt Date: 20090202
  Transmission Date: 20090719
  Serious: Yes (Other)
  Sender: FDA-Public Use
  Company Number: None

PATIENT
  Age: 32 Year
  Sex: Female
  Weight: 68.9467 kg

DRUGS (1)
  1. LEVAQUIN [Suspect]
     Indication: SINUSITIS
     Dates: start: 20090128, end: 20090130

REACTIONS (5)
  - ASTHENIA [None]
  - BURNING SENSATION [None]
  - CONFUSIONAL STATE [None]
  - INSOMNIA [None]
  - MYALGIA [None]
